FAERS Safety Report 8335266-9 (Version None)
Quarter: 2012Q2

REPORT INFORMATION
  Report Type: 
  Country: None (occurrence: None)
  Receive Date: 20120503
  Receipt Date: 20120427
  Transmission Date: 20120825
  Serious: Yes (Other)
  Sender: FDA-Public Use
  Company Number: FR-ABBOTT-12P-056-0928363-00

PATIENT
  Sex: Female
  Weight: 65 kg

DRUGS (2)
  1. HUMIRA [Suspect]
     Indication: CROHN'S DISEASE
     Route: 058
     Dates: start: 20120217
  2. PREDNISONE TAB [Concomitant]
     Indication: CROHN'S DISEASE
     Route: 048
     Dates: start: 20120217, end: 20120303

REACTIONS (3)
  - EYE PAIN [None]
  - ALOPECIA [None]
  - HEADACHE [None]
